FAERS Safety Report 5731200-6 (Version None)
Quarter: 2008Q2

REPORT INFORMATION
  Report Type: 
  Country: None (occurrence: None)
  Receive Date: 20080507
  Receipt Date: 20080416
  Transmission Date: 20081010
  Serious: No
  Sender: FDA-Public Use
  Company Number: US-BOEHRINGER INGELHEIM GMBH, GERMANY-2008-BP-06054BP

PATIENT
  Age: 75 Year
  Sex: Female
  Weight: 62 kg

DRUGS (10)
  1. MIRAPEX [Suspect]
     Indication: RESTLESS LEGS SYNDROME
     Dates: end: 20080331
  2. PROCARDIA XL [Concomitant]
  3. SYNTHROID [Concomitant]
  4. PROZAC [Concomitant]
  5. XANAX [Concomitant]
  6. MICRO-K [Concomitant]
  7. LASIX [Concomitant]
  8. AMOXIL [Concomitant]
     Dates: start: 20080327
  9. FLAGYL [Concomitant]
     Indication: DIVERTICULITIS
     Dates: start: 20080328
  10. BENTYL [Concomitant]
     Indication: DIVERTICULITIS
     Dates: start: 20080328

REACTIONS (1)
  - HALLUCINATION [None]
